FAERS Safety Report 22937502 (Version 2)
Quarter: 2024Q2

REPORT INFORMATION
  Report Type: Spontaneous
  Country: SG (occurrence: SG)
  Receive Date: 20230913
  Receipt Date: 20240617
  Transmission Date: 20240716
  Serious: Yes (Other)
  Sender: FDA-Public Use
  Company Number: SG-ABBVIE-5400641

PATIENT
  Sex: Male

DRUGS (2)
  1. POTASSIUM CHLORIDE [Suspect]
     Active Substance: POTASSIUM CHLORIDE
     Indication: Glaucoma
     Dosage: SLOW RELEASE
     Route: 048
  2. DEXAMETHASONE\TOBRAMYCIN [Suspect]
     Active Substance: DEXAMETHASONE\TOBRAMYCIN
     Indication: Ocular discomfort
     Dosage: TOBRAMYCIN 0.3%/DEXAMETHASONE 0.1% EYE-DROPS FREQUENTLY
     Route: 065

REACTIONS (3)
  - Glaucomatous optic neuropathy [Recovered/Resolved]
  - Off label use [Unknown]
  - Intentional product misuse [Unknown]
